FAERS Safety Report 10447226 (Version 1)
Quarter: 2014Q3

REPORT INFORMATION
  Report Type: Spontaneous
  Country: IT (occurrence: None)
  Receive Date: 20140909
  Receipt Date: 20140909
  Transmission Date: 20150326
  Serious: Yes (Other)
  Sender: FDA-Public Use
  Company Number: AXC-2014-000543

PATIENT
  Sex: Female

DRUGS (1)
  1. URSODEOXYCHOLIC ACID (URSODEOXYCHOLIC ACID) UNKNOWN) [Suspect]
     Active Substance: URSODIOL
     Indication: CHOLESTASIS OF PREGNANCY
     Dates: start: 20140110, end: 20140111

REACTIONS (3)
  - Foetal death [None]
  - Premature separation of placenta [None]
  - Maternal exposure timing unspecified [None]

NARRATIVE: CASE EVENT DATE: 20140121
